FAERS Safety Report 10200361 (Version 1)
Quarter: 2014Q2

REPORT INFORMATION
  Report Type: Spontaneous
  Country: US (occurrence: US)
  Receive Date: 20140528
  Receipt Date: 20140528
  Transmission Date: 20141212
  Serious: Yes (Other)
  Sender: FDA-Public Use
  Company Number: US-AMGEN INC.-USASP2014038661

PATIENT
  Age: 57 Year
  Sex: Female

DRUGS (1)
  1. ENBREL [Suspect]
     Indication: PSORIATIC ARTHROPATHY
     Dosage: 50 MG, QWK
     Route: 065
     Dates: start: 20140205, end: 20140219

REACTIONS (9)
  - Cardiac disorder [Recovered/Resolved]
  - Palpitations [Recovered/Resolved]
  - Chest discomfort [Recovered/Resolved]
  - Skin sensitisation [Recovered/Resolved]
  - Pain in jaw [Recovered/Resolved]
  - Back pain [Recovered/Resolved]
  - Injection site pruritus [Recovered/Resolved]
  - Injection site erythema [Recovered/Resolved]
  - Injection site rash [Recovered/Resolved]
